FAERS Safety Report 5151138-5 (Version None)
Quarter: 2006Q4

REPORT INFORMATION
  Report Type: 
  Country: None (occurrence: None)
  Receive Date: 20061114
  Receipt Date: 20061114
  Transmission Date: 20070319
  Serious: Yes (Hospitalization)
  Sender: FDA-Public Use
  Company Number: None

PATIENT
  Age: 66 Year
  Sex: Male
  Weight: 67.1324 kg

DRUGS (2)
  1. ERBITUX [Suspect]
     Indication: HYPOPHARYNGEAL CANCER
     Dosage: 250 MG/M2 ONCE / WEEK IV DRIP
     Route: 041
     Dates: start: 20060925, end: 20061120
  2. ERBITUX [Suspect]
     Indication: SQUAMOUS CELL CARCINOMA
     Dosage: 250 MG/M2 ONCE / WEEK IV DRIP
     Route: 041
     Dates: start: 20060925, end: 20061120

REACTIONS (5)
  - BLOOD MAGNESIUM DECREASED [None]
  - DEHYDRATION [None]
  - LEUKOPENIA [None]
  - PYREXIA [None]
  - WEIGHT DECREASED [None]
